FAERS Safety Report 12126296 (Version 1)
Quarter: 2016Q1

REPORT INFORMATION
  Report Type: Spontaneous
  Country: US (occurrence: US)
  Receive Date: 20160229
  Receipt Date: 20160229
  Transmission Date: 20160526
  Serious: Yes (Other)
  Sender: FDA-Public Use
  Company Number: US-TEVA-636546USA

PATIENT
  Sex: Female

DRUGS (1)
  1. PARAGARD T 380A [Suspect]
     Active Substance: COPPER
     Route: 015

REACTIONS (8)
  - Acute abdomen [Unknown]
  - Complication associated with device [Unknown]
  - Device dislocation [Unknown]
  - Device breakage [Unknown]
  - Uterine perforation [Unknown]
  - Pain [Unknown]
  - Colonic fistula [Unknown]
  - Embedded device [Unknown]
